FAERS Safety Report 15113988 (Version 1)
Quarter: 2018Q2

REPORT INFORMATION
  Report Type: Spontaneous
  Country: US (occurrence: US)
  Receive Date: 20180612
  Receipt Date: 20180612
  Transmission Date: 20180711
  Serious: No
  Sender: FDA-Public Use
  Company Number: None

PATIENT
  Age: 63 Year
  Sex: Female

DRUGS (4)
  1. LOSARTAN. [Concomitant]
     Active Substance: LOSARTAN
  2. METOPROLOL. [Concomitant]
     Active Substance: METOPROLOL
  3. IMATINIB MES TAB 400MG [Suspect]
     Active Substance: IMATINIB MESYLATE
  4. NAPROXEN. [Concomitant]
     Active Substance: NAPROXEN

REACTIONS (4)
  - Nausea [None]
  - Decreased appetite [None]
  - Periorbital oedema [None]
  - Fatigue [None]

NARRATIVE: CASE EVENT DATE: 20180611
